FAERS Safety Report 8155568-9 (Version None)
Quarter: 2012Q1

REPORT INFORMATION
  Report Type: 
  Country: None (occurrence: None)
  Receive Date: 20120215
  Receipt Date: 20120201
  Transmission Date: 20120608
  Serious: Yes (Other)
  Sender: FDA-Public Use
  Company Number: 2012P1004574

PATIENT
  Age: 64 Year
  Sex: Male

DRUGS (1)
  1. FAMOTIDINE [Suspect]

REACTIONS (1)
  - HAEMOLYTIC ANAEMIA [None]
